FAERS Safety Report 20447402 (Version 7)
Quarter: 2022Q3

REPORT INFORMATION
  Report Type: Spontaneous
  Country: ES (occurrence: ES)
  Receive Date: 20220209
  Receipt Date: 20220919
  Transmission Date: 20221026
  Serious: Yes (Life-Threatening, Hospitalization, Other)
  Sender: FDA-Public Use
  Company Number: ES-CELLTRION INC.-2022ES001167

PATIENT

DRUGS (18)
  1. RITUXIMAB [Suspect]
     Active Substance: RITUXIMAB
     Indication: Waldenstrom^s macroglobulinaemia
     Dosage: UNK, PRIOR TO RB, THE PATIENT HAD RECEIVED 8 R CYCLES AS FIRST-LINE THERAPY
     Route: 065
  2. RITUXIMAB [Suspect]
     Active Substance: RITUXIMAB
     Dosage: 23 DAYS BEFORE ADMISSION, THE PATIENT RECEIVED THE SECOND CYCLE OF RB AS SECOND-LINE TREATMENT FOR W
  3. RITUXIMAB [Suspect]
     Active Substance: RITUXIMAB
     Dosage: UNK, CYCLIC (SECOND-LINE TREATMENT, 2 CYCLES)
  4. RITUXIMAB [Suspect]
     Active Substance: RITUXIMAB
     Dosage: UNK
  5. RITUXIMAB [Suspect]
     Active Substance: RITUXIMAB
     Dosage: UNK
  6. RITUXIMAB [Suspect]
     Active Substance: RITUXIMAB
     Dosage: UNK, 23 DAYS BEFORE ADMISSION, PATIENT RECEIVED THE 2ND CYCLE OF RB AS 2ND-LINE TREATMENT
  7. RITUXIMAB [Suspect]
     Active Substance: RITUXIMAB
     Dosage: UNK, CYCLE (UNK UNK, CYCLIC)
  8. BENDAMUSTINE [Suspect]
     Active Substance: BENDAMUSTINE
     Indication: Waldenstrom^s macroglobulinaemia
     Dosage: 23 DAYS BEFORE ADMISSION, THE PATIENT RECEIVED THE SECOND CYCLE OF RB AS SECOND-LINE TREATMENT FOR W
     Route: 065
  9. BENDAMUSTINE [Suspect]
     Active Substance: BENDAMUSTINE
     Dosage: UNK, CYCLIC
  10. BENDAMUSTINE [Suspect]
     Active Substance: BENDAMUSTINE
     Dosage: UNK
  11. BENDAMUSTINE [Suspect]
     Active Substance: BENDAMUSTINE
     Dosage: UNK
  12. BENDAMUSTINE [Suspect]
     Active Substance: BENDAMUSTINE
     Dosage: UNK UNK, CYCLE (UNK, CYCLIC)
  13. BENDAMUSTINE [Suspect]
     Active Substance: BENDAMUSTINE
     Dosage: UNK, 23 DAYS BEFORE ADMISSION, PATIENT RECEIVED THE 2ND CYCLE OF RB AS 2ND-LINE TREATMENT
  14. BENDAMUSTINE [Suspect]
     Active Substance: BENDAMUSTINE
     Dosage: UNK, CYCLIC (SECOND-LINE TREATMENT, 2 CYCLE)
  15. BENDAMUSTINE HYDROCHLORIDE [Suspect]
     Active Substance: BENDAMUSTINE HYDROCHLORIDE
     Indication: Waldenstrom^s macroglobulinaemia
     Dosage: UNK, CYCLIC (SECOND-LINE TREATMENT, 2 CYCLE)
  16. BENDAMUSTINE HYDROCHLORIDE [Suspect]
     Active Substance: BENDAMUSTINE HYDROCHLORIDE
     Dosage: RECEIVING SECOND-LINE TREATMENT WITH BENDAMUSTINE AND RITUXIMAB AND HAD RECEIVED THE
  17. BENDAMUSTINE HYDROCHLORIDE [Suspect]
     Active Substance: BENDAMUSTINE HYDROCHLORIDE
     Dosage: UNK UNK, CYCLE (UNK, CYCLIC)
  18. BENDAMUSTINE HYDROCHLORIDE [Suspect]
     Active Substance: BENDAMUSTINE HYDROCHLORIDE
     Indication: Waldenstrom^s macroglobulinaemia
     Dosage: UNK UNK, CYCLE (UNK, CYCLIC)
     Route: 042

REACTIONS (9)
  - Agranulocytosis [Recovered/Resolved]
  - Autoimmune neutropenia [Recovered/Resolved]
  - Cytopenia [Recovered/Resolved]
  - Neutropenia [Recovered/Resolved]
  - Escherichia urinary tract infection [Recovered/Resolved]
  - Escherichia bacteraemia [Recovered/Resolved]
  - Product use issue [Unknown]
  - Off label use [Unknown]
  - Off label use [Unknown]
